FAERS Safety Report 8923418 (Version 2)
Quarter: 2012Q4

REPORT INFORMATION
  Report Type: 
  Country: DE (occurrence: DE)
  Receive Date: 20121123
  Receipt Date: 20121231
  Transmission Date: 20130627
  Serious: Yes (Hospitalization)
  Sender: FDA-Public Use
  Company Number: DE-JNJFOC-20121103953

PATIENT
  Age: 50 Year
  Sex: Female

DRUGS (2)
  1. XEPLION [Suspect]
     Indication: SCHIZOPHRENIA, CATATONIC TYPE
     Route: 030
  2. LEPONEX [Concomitant]
     Indication: SCHIZOPHRENIA
     Dosage: 500-600mg per day
     Route: 048

REACTIONS (2)
  - Schizophrenia [Unknown]
  - Inappropriate schedule of drug administration [Unknown]
